FAERS Safety Report 8529445-5 (Version None)
Quarter: 2012Q3

REPORT INFORMATION
  Report Type: 
  Country: None (occurrence: None)
  Receive Date: 20120723
  Receipt Date: 20120713
  Transmission Date: 20120928
  Serious: Yes (Hospitalization, Other)
  Sender: FDA-Public Use
  Company Number: US-BAYER-2011-075109

PATIENT
  Age: 19 Year
  Sex: Female
  Weight: 68.027 kg

DRUGS (8)
  1. ORTHO TRI-CYCLEN [Concomitant]
  2. AMOXICILLIN AND CLAVULANATE POTASSIUM [Concomitant]
     Dosage: 875 MG, UNK
     Dates: start: 20090307
  3. YASMIN [Suspect]
     Indication: CONTRACEPTION
     Dosage: UNK
     Dates: start: 20080901, end: 20090501
  4. HYDROCODONE BITARTRATE AND ACETAMINOPHEN [Concomitant]
     Dosage: 7.5/500
     Route: 048
     Dates: start: 20090504
  5. YAZ [Suspect]
     Indication: CONTRACEPTION
     Dosage: UNK
     Dates: start: 20080201, end: 20080901
  6. AMITRIPTYLINE HCL [Concomitant]
     Dosage: 25 MG, UNK
     Route: 048
     Dates: start: 20080107, end: 20090827
  7. FLUTICASONE PROPIONATE [Concomitant]
     Dosage: 50 ?G, UNK
     Route: 048
     Dates: start: 20090307
  8. CLARITIN [Concomitant]
     Indication: MULTIPLE ALLERGIES

REACTIONS (4)
  - GALLBLADDER INJURY [None]
  - INJURY [None]
  - HEPATOBILIARY SCAN ABNORMAL [None]
  - PAIN [None]
